FAERS Safety Report 14192028 (Version 1)
Quarter: 2017Q4

REPORT INFORMATION
  Report Type: Spontaneous
  Country: US (occurrence: US)
  Receive Date: 20171115
  Receipt Date: 20171115
  Transmission Date: 20180321
  Serious: No
  Sender: FDA-Public Use
  Company Number: US-HIKMA PHARMACEUTICALS CO. LTD-2017US014348

PATIENT

DRUGS (1)
  1. INFLECTRA [Suspect]
     Active Substance: INFLIXIMAB-DYYB
     Indication: RHEUMATOID ARTHRITIS
     Dosage: 2 VIALS, 0, 2 AND 6 WEEKS, AND THEN EVERY 8 WEEKS
     Route: 065

REACTIONS (1)
  - Prescribed underdose [Unknown]
